FAERS Safety Report 21233013 (Version 1)
Quarter: 2022Q3

REPORT INFORMATION
  Report Type: Spontaneous
  Country: ES (occurrence: ES)
  Receive Date: 20220819
  Receipt Date: 20220819
  Transmission Date: 20221026
  Serious: Yes (Disabling)
  Sender: FDA-Public Use
  Company Number: ES-TEVA-2022-ES-2056537

PATIENT
  Age: 95 Year
  Sex: Male

DRUGS (3)
  1. RISPERIDONE [Suspect]
     Active Substance: RISPERIDONE
     Indication: Dementia
     Dosage: 1 DOSAGE FORM, QD, (1 DOSAGE FORMS DAILY;)
     Route: 048
     Dates: start: 20220714
  2. RISPERIDONE [Suspect]
     Active Substance: RISPERIDONE
     Dosage: 2 DOSAGE FORM, QD (4 DOSAGE FORMS DAILY;)
     Route: 048
     Dates: start: 202207, end: 20220713
  3. RISPERIDONE [Suspect]
     Active Substance: RISPERIDONE
     Dosage: 1.5 DOSAGE FORM, QD (1.5 DOSAGE FORM, 1 DAY)
     Route: 048
     Dates: start: 20220713, end: 20220714

REACTIONS (4)
  - Feeding disorder [Recovered/Resolved]
  - Movement disorder [Recovered/Resolved]
  - Speech disorder [Recovered/Resolved]
  - Overdose [Recovered/Resolved]

NARRATIVE: CASE EVENT DATE: 20220701
